FAERS Safety Report 11464140 (Version 1)
Quarter: 2015Q3

REPORT INFORMATION
  Report Type: Spontaneous
  Country: US (occurrence: US)
  Receive Date: 20150831
  Receipt Date: 20150831
  Transmission Date: 20151125
  Serious: No
  Sender: FDA-Public Use
  Company Number: US-ELI_LILLY_AND_COMPANY-US201106006464

PATIENT
  Age: 23 Year
  Sex: Female

DRUGS (4)
  1. CYMBALTA [Suspect]
     Active Substance: DULOXETINE HYDROCHLORIDE
     Indication: MAJOR DEPRESSION
     Dosage: 60 MG, UNK
     Dates: start: 2004
  2. CYMBALTA [Suspect]
     Active Substance: DULOXETINE HYDROCHLORIDE
     Dosage: 90 MG, UNK
  3. CYMBALTA [Suspect]
     Active Substance: DULOXETINE HYDROCHLORIDE
     Dosage: 60 MG, UNK
  4. CHANTIX [Concomitant]
     Active Substance: VARENICLINE TARTRATE
     Indication: SMOKING CESSATION THERAPY

REACTIONS (5)
  - Tremor [Recovered/Resolved]
  - Muscular weakness [Recovered/Resolved]
  - Somnolence [Recovered/Resolved]
  - Anxiety [Recovered/Resolved]
  - Depressed mood [Unknown]
